FAERS Safety Report 15587425 (Version 7)
Quarter: 2019Q1

REPORT INFORMATION
  Report Type: Report from Study
  Country: US (occurrence: US)
  Receive Date: 20181105
  Receipt Date: 20190116
  Transmission Date: 20190417
  Serious: Yes (Hospitalization, Other)
  Sender: FDA-Public Use
  Company Number: US-PFIZER INC-2018383334

PATIENT
  Age: 61 Year
  Sex: Male

DRUGS (2)
  1. SUTENT [Suspect]
     Active Substance: SUNITINIB MALATE
     Indication: RENAL CELL CARCINOMA
     Dosage: 37.5 MG, CYCLIC (37.5 MG, DAILY 4 WEEKS ON, 2 WEEKS OFF)
     Route: 048
     Dates: start: 20180913, end: 20181024
  2. SUTENT [Suspect]
     Active Substance: SUNITINIB MALATE
     Dosage: 25 MG, CYCLIC (25 MG, DAILY 2 WEEKS ON, 1 WEEK OFF )
     Route: 048
     Dates: start: 20181214, end: 20190104

REACTIONS (22)
  - Lung infection [Unknown]
  - Vomiting [Recovered/Resolved]
  - Asthenia [Unknown]
  - Sputum discoloured [Unknown]
  - Pleural effusion [Recovered/Resolved]
  - Feeling abnormal [Recovered/Resolved]
  - Dyspnoea [Not Recovered/Not Resolved]
  - Fatigue [Unknown]
  - Neoplasm progression [Unknown]
  - Constipation [Recovered/Resolved]
  - Abnormal faeces [Unknown]
  - Cough [Unknown]
  - Gallbladder disorder [Unknown]
  - Abdominal distension [Recovered/Resolved]
  - Tenderness [Recovered/Resolved]
  - Nausea [Unknown]
  - Lung disorder [Unknown]
  - Pneumonia [Unknown]
  - Chest pain [Unknown]
  - Flatulence [Unknown]
  - Back pain [Unknown]
  - Crepitations [Unknown]

NARRATIVE: CASE EVENT DATE: 2018
